FAERS Safety Report 10145730 (Version 1)
Quarter: 2014Q2

REPORT INFORMATION
  Report Type: Spontaneous
  Country: US (occurrence: None)
  Receive Date: 20140430
  Receipt Date: 20140430
  Transmission Date: 20141212
  Serious: Yes (Death)
  Sender: FDA-Public Use
  Company Number: None

PATIENT
  Age: 79 Year
  Sex: Female

DRUGS (3)
  1. FACTOR IX COMPLEX [Suspect]
     Indication: HAEMORRHAGE
     Dosage: 4100 UNITS ONCE IV
     Route: 042
     Dates: start: 20140115, end: 20140115
  2. LIDOCAINE [Concomitant]
  3. FACTOR VII [Concomitant]

REACTIONS (4)
  - Cardiac arrest [None]
  - Cardio-respiratory arrest [None]
  - Pulmonary embolism [None]
  - Circulatory collapse [None]
